FAERS Safety Report 4628328-0 (Version None)
Quarter: 2005Q2

REPORT INFORMATION
  Report Type: 
  Country: None (occurrence: None)
  Receive Date: 20050401
  Receipt Date: 20050208
  Transmission Date: 20051028
  Serious: Yes (Hospitalization, Other)
  Sender: FDA-Public Use
  Company Number: 2005-00223

PATIENT
  Age: 40 Year
  Sex: Female

DRUGS (7)
  1. INTEGRILIN [Suspect]
     Indication: CORONARY ANGIOPLASTY
     Dosage: 180.00 UG/KG X2, IV BOLUS
     Route: 040
  2. ASPIRIN [Concomitant]
  3. HEPARIN [Concomitant]
  4. NITROGLYCERIN [Concomitant]
  5. SIMVASTATIN [Concomitant]
  6. CLOPIDOGREL BISULFATE [Concomitant]
  7. INTEGRILIN [Suspect]
     Dosage: 2.00 UG/KG/MIN, IV DRIP
     Route: 041

REACTIONS (10)
  - CARDIAC ARREST [None]
  - CHEST PAIN [None]
  - CORONARY ARTERY REOCCLUSION [None]
  - CORONARY ARTERY STENOSIS [None]
  - DYSPNOEA [None]
  - ELECTROCARDIOGRAM ST SEGMENT ELEVATION [None]
  - HAEMATOMA [None]
  - HYPERHIDROSIS [None]
  - PETECHIAE [None]
  - THROMBOCYTOPENIA [None]
